FAERS Safety Report 4958300-2 (Version None)
Quarter: 2006Q1

REPORT INFORMATION
  Report Type: 
  Country: None (occurrence: None)
  Receive Date: 20060324
  Receipt Date: 20060309
  Transmission Date: 20060701
  Serious: Yes (Other)
  Sender: FDA-Public Use
  Company Number: CA200603002763

PATIENT
  Age: 65 Year
  Sex: Female

DRUGS (9)
  1. FORTEO [Suspect]
     Indication: OSTEOPOROSIS
     Dosage: 20 UG, DAILY (1/D),
     Dates: start: 20060201
  2. FORTEO [Concomitant]
  3. IMURAN [Concomitant]
  4. PREDNISONE TAB [Concomitant]
  5. CALCIUM (CALCIUM) [Concomitant]
  6. PANTOPRAZOLE SODIUM [Concomitant]
  7. PEPCID [Concomitant]
  8. MAXERAN (METOCLOPRAMIDE HYDROCHLORIDE) [Concomitant]
  9. NORVASC /DEN/ (AMLODIPINE BESILATE) [Concomitant]

REACTIONS (2)
  - BLOOD PRESSURE INCREASED [None]
  - DIZZINESS [None]
